FAERS Safety Report 7792768-1 (Version None)
Quarter: 2011Q4

REPORT INFORMATION
  Report Type: 
  Country: None (occurrence: None)
  Receive Date: 20111003
  Receipt Date: 20110923
  Transmission Date: 20120403
  Serious: Yes (Hospitalization)
  Sender: FDA-Public Use
  Company Number: US-MPIJNJ-2011-03593

PATIENT
  Sex: Female
  Weight: 116 kg

DRUGS (1)
  1. VELCADE [Suspect]
     Indication: MULTIPLE MYELOMA
     Dosage: 2 MG, UNK
     Route: 042
     Dates: start: 20100929, end: 20110304

REACTIONS (6)
  - ANAEMIA [None]
  - THROMBOCYTOPENIA [None]
  - FATIGUE [None]
  - CACHEXIA [None]
  - PNEUMONIA [None]
  - HYPOMAGNESAEMIA [None]
